FAERS Safety Report 6882544-6 (Version None)
Quarter: 2010Q3

REPORT INFORMATION
  Report Type: 
  Country: None (occurrence: None)
  Receive Date: 20100727
  Receipt Date: 20100721
  Transmission Date: 20110219
  Serious: Yes (Hospitalization)
  Sender: FDA-Public Use
  Company Number: RB-05358-2010

PATIENT
  Age: 50 Year
  Sex: Female

DRUGS (1)
  1. SUBOXONE [Suspect]
     Indication: DRUG DEPENDENCE
     Dosage: (16 MG SUBLINGUAL)
     Route: 060
     Dates: start: 20100201

REACTIONS (6)
  - CHEST PAIN [None]
  - HALLUCINATION [None]
  - OEDEMA PERIPHERAL [None]
  - TOOTH DISORDER [None]
  - URINARY TRACT INFECTION [None]
  - VOMITING [None]
